FAERS Safety Report 14917619 (Version 1)
Quarter: 2018Q2

REPORT INFORMATION
  Report Type: Report from Study
  Country: None (occurrence: US)
  Receive Date: 20180521
  Receipt Date: 20180521
  Transmission Date: 20180711
  Serious: Yes (Other)
  Sender: FDA-Public Use
  Company Number: US-ABBVIE-18K-163-2358790-00

PATIENT
  Age: 40 Year
  Sex: Female

DRUGS (1)
  1. HUMIRA [Suspect]
     Active Substance: ADALIMUMAB
     Indication: RHEUMATOID ARTHRITIS
     Route: 058

REACTIONS (7)
  - Fractured coccyx [Recovering/Resolving]
  - Breast haematoma [Recovering/Resolving]
  - Breast injury [Recovering/Resolving]
  - Alopecia areata [Unknown]
  - Pruritus generalised [Unknown]
  - Stress [Unknown]
  - Road traffic accident [Unknown]

NARRATIVE: CASE EVENT DATE: 201804
